FAERS Safety Report 9884956 (Version 1)
Quarter: 2014Q1

REPORT INFORMATION
  Report Type: Spontaneous
  Country: FR (occurrence: FR)
  Receive Date: 20140210
  Receipt Date: 20140210
  Transmission Date: 20141002
  Serious: Yes (Hospitalization)
  Sender: FDA-Public Use
  Company Number: FR-SA-2014SA013691

PATIENT
  Sex: Male

DRUGS (4)
  1. AFLIBERCEPT [Suspect]
     Indication: PRODUCT USED FOR UNKNOWN INDICATION
     Route: 042
  2. FOLINIC ACID [Concomitant]
     Route: 042
  3. IRINOTECAN [Concomitant]
     Route: 042
  4. FLUOROURACIL [Concomitant]
     Route: 042

REACTIONS (2)
  - Hyperthermia [Unknown]
  - Asthenia [Unknown]
